FAERS Safety Report 16549256 (Version 1)
Quarter: 2019Q3

REPORT INFORMATION
  Report Type: Spontaneous
  Country: ZA (occurrence: ZA)
  Receive Date: 20190709
  Receipt Date: 20190709
  Transmission Date: 20191004
  Serious: Yes (Hospitalization)
  Sender: FDA-Public Use
  Company Number: PHHY2019ZA156659

PATIENT
  Age: 60 Year
  Sex: Male

DRUGS (1)
  1. HEXARONE [Suspect]
     Active Substance: AMIODARONE
     Indication: CARDIAC DISORDER
     Dosage: 200 MG, UNK
     Route: 048

REACTIONS (2)
  - Complication associated with device [Unknown]
  - Cardiac disorder [Unknown]
